FAERS Safety Report 9431787 (Version 1)
Quarter: 2013Q3

REPORT INFORMATION
  Report Type: Spontaneous
  Country: US (occurrence: None)
  Receive Date: 20130726
  Receipt Date: 20130726
  Transmission Date: 20140515
  Serious: Yes (Other)
  Sender: FDA-Public Use
  Company Number: CL-508-2013

PATIENT
  Age: 46 Year
  Sex: Male

DRUGS (4)
  1. ONDANSETRON [Suspect]
     Indication: NAUSEA
  2. ONDANSETRON [Suspect]
     Indication: VOMITING
  3. FLUOXETINE [Suspect]
     Indication: BACK PAIN
     Dosage: 40 MG OD
  4. ULTRACET [Suspect]
     Indication: BACK PAIN
     Dosage: 37.5/325

REACTIONS (3)
  - Off label use [None]
  - Serotonin syndrome [None]
  - Drug interaction [None]
